FAERS Safety Report 18825310 (Version 6)
Quarter: 2021Q3

REPORT INFORMATION
  Report Type: Spontaneous
  Country: GB (occurrence: GB)
  Receive Date: 20210202
  Receipt Date: 20210928
  Transmission Date: 20211014
  Serious: Yes (Hospitalization, Other)
  Sender: FDA-Public Use
  Company Number: GB-SA-2021SA004436

PATIENT
  Age: 40 Year
  Sex: Female

DRUGS (26)
  1. DALTEPARIN [Concomitant]
     Active Substance: DALTEPARIN
     Dosage: 7500 UNK, QD
     Route: 058
     Dates: start: 20170724
  2. DENOSUMAB [Concomitant]
     Active Substance: DENOSUMAB
     Indication: BREAST CANCER METASTATIC
     Dosage: 120 MG, Q4W QMO (120 MG Q28D)
     Route: 058
     Dates: start: 20160323
  3. TAMOXIFEN CITRATE. [Suspect]
     Active Substance: TAMOXIFEN CITRATE
     Indication: BREAST CANCER METASTATIC
     Dosage: 1 DF, QD
     Route: 048
     Dates: start: 201603
  4. DALTEPARIN [Concomitant]
     Active Substance: DALTEPARIN
     Dosage: UNK UNK, QD
     Route: 058
  5. DEXAMETHASONE. [Concomitant]
     Active Substance: DEXAMETHASONE
     Indication: METASTASES TO BONE
     Dosage: 20 MG, Q3W
     Route: 042
     Dates: start: 20160324
  6. TRAMADOL. [Concomitant]
     Active Substance: TRAMADOL
     Dosage: 50 MG, QD
     Route: 048
     Dates: start: 20170724
  7. PARACETAMOL [Concomitant]
     Active Substance: ACETAMINOPHEN
     Indication: PRODUCT USED FOR UNKNOWN INDICATION
     Dosage: 1000 MG, QID
     Route: 048
     Dates: start: 20170724
  8. POTASSIUM CHLORIDE. [Concomitant]
     Active Substance: POTASSIUM CHLORIDE
     Dosage: UNK UNK, BID
     Route: 048
     Dates: start: 20170724
  9. DOCETAXEL. [Suspect]
     Active Substance: DOCETAXEL
     Indication: BREAST CANCER METASTATIC
     Dosage: 140 MG, QOW, CYCLIC (ONCE IN 2 WEEKS)
     Route: 042
     Dates: start: 20160324, end: 20160526
  10. DEXAMETHASONE. [Concomitant]
     Active Substance: DEXAMETHASONE
     Indication: BREAST CANCER METASTATIC
     Dosage: 6 MG, Q3W
     Route: 042
     Dates: start: 20191113
  11. PARACETAMOL [Concomitant]
     Active Substance: ACETAMINOPHEN
     Dosage: UNK
  12. CITALOPRAM [Concomitant]
     Active Substance: CITALOPRAM HYDROBROMIDE
     Indication: THROMBOSIS PROPHYLAXIS
     Dosage: 20 MG, QD (20 MG, 1X/DAY)
     Route: 048
     Dates: start: 201003
  13. DENOSUMAB [Concomitant]
     Active Substance: DENOSUMAB
     Indication: METASTASES TO BONE
     Dosage: 120 MG
     Route: 065
  14. OMEPRAZOLE. [Concomitant]
     Active Substance: OMEPRAZOLE
     Indication: DYSPEPSIA
     Dosage: 20 MG, 1X/DAY
     Route: 048
     Dates: start: 20170727
  15. OMEPRAZOLE. [Concomitant]
     Active Substance: OMEPRAZOLE
     Dosage: UNK
  16. PYRIDOXINE [Concomitant]
     Active Substance: PYRIDOXINE
     Dosage: 1 DF, QD
     Route: 048
     Dates: start: 20160810
  17. PERTUZUMAB. [Suspect]
     Active Substance: PERTUZUMAB
     Dosage: 420 MG, Q3W
     Route: 042
     Dates: start: 20160413
  18. DALTEPARIN [Concomitant]
     Active Substance: DALTEPARIN
     Indication: THROMBOSIS PROPHYLAXIS
     Dosage: 5000 IU, QD
     Route: 058
     Dates: start: 20160802, end: 20160809
  19. TRASTUZUMAB. [Suspect]
     Active Substance: TRASTUZUMAB
     Indication: BREAST CANCER METASTATIC
     Dosage: 651 MG, QD LOADING DOSEPLANNED NUMBER OF CYCLES COMPLETED   651 MG, QD
     Route: 041
     Dates: start: 20160323, end: 20160323
  20. GENTAMICIN. [Concomitant]
     Active Substance: GENTAMICIN
     Dosage: 5 MG/KG, QD
     Route: 042
     Dates: start: 20181128
  21. DOCETAXEL. [Suspect]
     Active Substance: DOCETAXEL
     Dosage: 110 MG, QOW, CYCLIC (EVERY 2 WEEKS)
     Route: 042
     Dates: start: 20160526, end: 20160707
  22. TRASTUZUMAB. [Suspect]
     Active Substance: TRASTUZUMAB
     Dosage: 483 MG, Q3W, CYCLIC (420 MG EVERY 3 WEEKS)
     Route: 042
     Dates: start: 20160413
  23. PERTUZUMAB. [Suspect]
     Active Substance: PERTUZUMAB
     Indication: BREAST CANCER METASTATIC
     Dosage: 840 MG, QD LOADING DOSE:PLANNED NUMBER OF CYCLES COMPLETED   840 MG, QD
     Route: 042
     Dates: start: 20160324, end: 20160324
  24. PERTUZUMAB. [Suspect]
     Active Substance: PERTUZUMAB
     Dosage: 420 MG, Q3W
     Route: 042
  25. CEFTRIAXONE. [Concomitant]
     Active Substance: CEFTRIAXONE
     Dosage: 2 MG, QD (INTRA CORPUS CAVERNOSUM )
     Dates: start: 20181128
  26. GLICLAZIDE [Concomitant]
     Active Substance: GLICLAZIDE
     Dosage: 30 MG, BID
     Route: 048

REACTIONS (8)
  - Atrial thrombosis [Recovered/Resolved]
  - Musculoskeletal stiffness [Recovered/Resolved]
  - Joint stiffness [Recovered/Resolved]
  - Diarrhoea [Not Recovered/Not Resolved]
  - Influenza like illness [Recovered/Resolved]
  - Infection [Recovered/Resolved]
  - Fatigue [Recovered/Resolved]
  - Atrophic vulvovaginitis [Recovered/Resolved]

NARRATIVE: CASE EVENT DATE: 20160324
